FAERS Safety Report 14854052 (Version 3)
Quarter: 2018Q3

REPORT INFORMATION
  Report Type: Spontaneous
  Country: US (occurrence: US)
  Receive Date: 20180507
  Receipt Date: 20180907
  Transmission Date: 20181010
  Serious: Yes (Other)
  Sender: FDA-Public Use
  Company Number: US-BAYER-2018-082876

PATIENT
  Age: 31 Year
  Sex: Female
  Weight: 91.16 kg

DRUGS (2)
  1. MIRENA [Suspect]
     Active Substance: LEVONORGESTREL
     Indication: CONTRACEPTION
     Dosage: 20 MCG/24HR, CONT
     Route: 015
     Dates: start: 20180317, end: 20180416
  2. MIRENA [Suspect]
     Active Substance: LEVONORGESTREL
     Indication: CONTRACEPTION
     Dosage: 20 MCG/24HR, CONT
     Route: 015
     Dates: start: 20130522, end: 20180317

REACTIONS (4)
  - Device breakage [None]
  - Device expulsion [None]
  - Complication of device removal [None]
  - Embedded device [Recovered/Resolved]

NARRATIVE: CASE EVENT DATE: 20180316
